FAERS Safety Report 18686877 (Version 2)
Quarter: 2021Q1

REPORT INFORMATION
  Report Type: Spontaneous
  Country: AR (occurrence: AR)
  Receive Date: 20201230
  Receipt Date: 20210119
  Transmission Date: 20210419
  Serious: Yes (Other)
  Sender: FDA-Public Use
  Company Number: AR-SUN PHARMACEUTICAL INDUSTRIES LTD-2020R1-272978

PATIENT
  Age: 10 Day
  Sex: Female

DRUGS (1)
  1. FLECAINIDE [Suspect]
     Active Substance: FLECAINIDE
     Indication: SUPRAVENTRICULAR TACHYCARDIA
     Dosage: 60 MG / M2 / DAY
     Route: 048

REACTIONS (2)
  - Tachycardia induced cardiomyopathy [Recovered/Resolved]
  - Ventricular dyssynchrony [Recovered/Resolved]
